FAERS Safety Report 10478406 (Version 1)
Quarter: 2014Q3

REPORT INFORMATION
  Report Type: Spontaneous
  Country: US (occurrence: US)
  Receive Date: 20140926
  Receipt Date: 20140926
  Transmission Date: 20150326
  Serious: No
  Sender: FDA-Public Use
  Company Number: US-TARO-2013P1017007

PATIENT
  Age: 6 Year
  Sex: Male

DRUGS (1)
  1. OVIDE [Suspect]
     Active Substance: MALATHION
     Dosage: X1
     Route: 047
     Dates: start: 20130805, end: 20130805

REACTIONS (4)
  - Eye irritation [Unknown]
  - Ocular hyperaemia [Unknown]
  - Exposure via direct contact [Recovered/Resolved]
  - Eye swelling [Unknown]

NARRATIVE: CASE EVENT DATE: 20130805
